FAERS Safety Report 4731264-2 (Version None)
Quarter: 2005Q3

REPORT INFORMATION
  Report Type: 
  Country: None (occurrence: None)
  Receive Date: 20050728
  Receipt Date: 20050728
  Transmission Date: 20060218
  Serious: Yes (Other)
  Sender: FDA-Public Use
  Company Number: None

PATIENT
  Age: 69 Year
  Sex: Male
  Weight: 88 kg

DRUGS (8)
  1. FOSINOPRIL SODIUM [Suspect]
  2. SILDENAFIL CITRATE [Concomitant]
  3. SIMVASTATIN [Concomitant]
  4. PHENOBARBITAL [Concomitant]
  5. RANITIDINE [Concomitant]
  6. FOSINOPRIL SODIUM [Concomitant]
  7. SULINDAC [Concomitant]
  8. GLYBURIDE 5MG/METFORMIN HCL [Concomitant]

REACTIONS (1)
  - SWELLING [None]
